FAERS Safety Report 5780170-3 (Version None)
Quarter: 2008Q2

REPORT INFORMATION
  Report Type: 
  Country: None (occurrence: None)
  Receive Date: 20080620
  Receipt Date: 20080610
  Transmission Date: 20081010
  Serious: Yes (Death, Other)
  Sender: FDA-Public Use
  Company Number: JP-WYE-H04538108

PATIENT
  Age: 44 Year
  Sex: Male

DRUGS (12)
  1. AMIODARONE HCL [Suspect]
     Indication: ARRHYTHMIA
     Route: 048
     Dates: start: 20080520, end: 20080523
  2. TORSEMIDE [Concomitant]
  3. ALLOPURINOL [Concomitant]
  4. FLUITRAN [Concomitant]
  5. LOXONIN [Concomitant]
  6. ACARDI [Concomitant]
  7. TANATRIL [Concomitant]
  8. CARVEDILOL [Concomitant]
  9. SELBEX [Concomitant]
  10. LASIX [Concomitant]
  11. LANIRAPID [Concomitant]
  12. WARFARIN SODIUM [Concomitant]

REACTIONS (2)
  - BRADYCARDIA [None]
  - CARDIAC FAILURE [None]
